FAERS Safety Report 11825070 (Version 1)
Quarter: 2015Q4

REPORT INFORMATION
  Report Type: Spontaneous
  Country: US (occurrence: None)
  Receive Date: 20151210
  Receipt Date: 20151210
  Transmission Date: 20160305
  Serious: Yes (Life-Threatening, Hospitalization, Disabling)
  Sender: FDA-Public Use
  Company Number: None

PATIENT
  Age: 27 Year
  Sex: Female
  Weight: 59.42 kg

DRUGS (1)
  1. NUVARING [Suspect]
     Active Substance: ETHINYL ESTRADIOL\ETONOGESTREL
     Indication: CONTRACEPTION
     Dosage: ONE RING MONTHLY
     Route: 067
     Dates: start: 20150501, end: 20150731

REACTIONS (6)
  - Thrombosis [None]
  - Chronic obstructive pulmonary disease [None]
  - Neuralgia [None]
  - Pulmonary embolism [None]
  - Job dissatisfaction [None]
  - Lung disorder [None]

NARRATIVE: CASE EVENT DATE: 20140731
